FAERS Safety Report 9485315 (Version 4)
Quarter: 2013Q4

REPORT INFORMATION
  Report Type: Report from Study
  Country: US (occurrence: US)
  Receive Date: 20130828
  Receipt Date: 20131022
  Transmission Date: 20140711
  Serious: Yes (Other)
  Sender: FDA-Public Use
  Company Number: US-ROCHE-1266904

PATIENT
  Sex: Male
  Weight: 116.68 kg

DRUGS (5)
  1. LUCENTIS [Suspect]
     Indication: MACULAR OEDEMA
     Dosage: OS (LEFT EYE)
     Route: 031
     Dates: start: 20130716
  2. LUCENTIS [Suspect]
     Indication: DIABETIC RETINAL OEDEMA
  3. AVASTIN [Suspect]
     Indication: DIABETIC RETINOPATHY
     Dosage: OS
     Route: 050
     Dates: start: 20130410
  4. AVASTIN [Suspect]
     Indication: DIABETIC RETINAL OEDEMA
     Route: 065
     Dates: start: 20130424
  5. AVASTIN [Suspect]
     Route: 031
     Dates: start: 20130614

REACTIONS (4)
  - Cystoid macular oedema [Unknown]
  - Therapeutic response decreased [Unknown]
  - Blood pressure increased [Unknown]
  - Retinal exudates [Unknown]
